FAERS Safety Report 5165353-8 (Version None)
Quarter: 2006Q4

REPORT INFORMATION
  Report Type: 
  Country: None (occurrence: None)
  Receive Date: 20061206
  Receipt Date: 20060703
  Transmission Date: 20070319
  Serious: Yes (Disabling)
  Sender: FDA-Public Use
  Company Number: PHFR2006GB02552

PATIENT
  Age: 86 Year
  Sex: Female
  Weight: 54.5 kg

DRUGS (7)
  1. LACTULOSE [Concomitant]
     Indication: CONSTIPATION
     Dosage: 15 ML, TID
     Route: 048
  2. TRIPTAFEN [Concomitant]
     Indication: DEPRESSION
     Dosage: 1 DF MANE; 2 DF NOCTE
     Route: 048
  3. AMLODIPINE [Concomitant]
     Indication: HYPERTENSION
     Dosage: 5 MG, QD
     Route: 048
  4. SIMVASTATIN [Concomitant]
     Indication: CARDIOVASCULAR DISORDER
     Dosage: 20MG NOCTE
     Route: 048
  5. ASPIRIN [Concomitant]
     Indication: CARDIOVASCULAR DISORDER
     Dosage: 75 MG, QD
     Route: 065
  6. LEVOTHYROXINE SODIUM [Concomitant]
     Indication: HYPOTHYROIDISM
     Route: 065
  7. FEMARA [Suspect]
     Indication: BREAST CANCER
     Dosage: 2.5 MG, QD
     Route: 048
     Dates: start: 20051201

REACTIONS (1)
  - GOUT [None]
